FAERS Safety Report 7349673-4 (Version None)
Quarter: 2011Q1

REPORT INFORMATION
  Report Type: 
  Country: None (occurrence: None)
  Receive Date: 20110314
  Receipt Date: 20110307
  Transmission Date: 20110831
  Serious: No
  Sender: FDA-Public Use
  Company Number: US-ROXANE LABORATORIES, INC.-2011-RO-00285RO

PATIENT
  Sex: Male

DRUGS (2)
  1. METOCLOPRAMIDE HCL [Suspect]
     Dates: start: 20010101, end: 20090101
  2. REGLAN [Suspect]
     Dates: start: 20010101, end: 20090101

REACTIONS (6)
  - TARDIVE DYSKINESIA [None]
  - TREMOR [None]
  - CONDITION AGGRAVATED [None]
  - PARKINSON'S DISEASE [None]
  - EXTRAPYRAMIDAL DISORDER [None]
  - DYSKINESIA [None]
